FAERS Safety Report 6025764-5 (Version None)
Quarter: 2008Q4

REPORT INFORMATION
  Report Type: 
  Country: None (occurrence: None)
  Receive Date: 20081224
  Receipt Date: 20081211
  Transmission Date: 20090506
  Serious: Yes (Other)
  Sender: FDA-Public Use
  Company Number: CIP08001619

PATIENT
  Age: 59 Year
  Sex: Female
  Weight: 55 kg

DRUGS (12)
  1. ACTONEL [Suspect]
     Indication: OSTEOPOROSIS
     Dosage: 35 MG, ORAL
     Route: 048
     Dates: start: 20060130, end: 20080129
  2. FLUTICASONE PROPIONATE W/SALMETEROL (FLUTICASONE PROPIONATE, SALMETERO [Concomitant]
  3. ALLEGRA /01314201/ (FEXOFENADINE) [Concomitant]
  4. CALCIUM (CALCIUM) [Concomitant]
  5. EVISTA /01303201/ (RALOXIFENE) [Concomitant]
  6. KLONOPIN [Concomitant]
  7. PREMARIN [Concomitant]
  8. SINGULAIR /01362601/ (MONTELUKAST) [Concomitant]
  9. MEDROL /00049601/ (METHYLPREDNISOLONE) [Concomitant]
  10. ZITHROMAX [Concomitant]
  11. ZYRTEC [Concomitant]
  12. HYCODAN /00060002/ (HYDROCODONE BITARTRATE) [Concomitant]

REACTIONS (7)
  - CONSTIPATION [None]
  - DEVICE RELATED INFECTION [None]
  - GRAFT LOSS [None]
  - IMPAIRED HEALING [None]
  - PAIN IN JAW [None]
  - RESORPTION BONE INCREASED [None]
  - TOOTH ABSCESS [None]
